FAERS Safety Report 9501988 (Version 1)
Quarter: 2013Q3

REPORT INFORMATION
  Report Type: Spontaneous
  Country: CN (occurrence: CN)
  Receive Date: 20130905
  Receipt Date: 20130905
  Transmission Date: 20140515
  Serious: Yes (Other)
  Sender: FDA-Public Use
  Company Number: CN-PFIZER INC-2013252654

PATIENT
  Age: 7 Year
  Sex: Female
  Weight: 20 kg

DRUGS (6)
  1. CYTOSAR-U [Suspect]
     Indication: LEUKAEMIC INFILTRATION BRAIN
     Dosage: 30 MG, 1X/DAY (30 MG AND NORMAL SALINE 2.5ML)
     Route: 037
     Dates: start: 20120207, end: 20120207
  2. CYCLOPHOSPHAMIDE [Concomitant]
     Dosage: 160 MG, 1X/DAY 160MG AND 100ML NORMAL SALINE ONCE DAILY (100MG/H)
     Route: 041
     Dates: start: 20120207
  3. VINCRISTINE SULFATE [Concomitant]
     Dosage: 1.2 MG, 1X/DAY (1.2MG AND 20ML NORMAL SALINE  VIA IV PUSH ONCE DAILY (IV PUSH SLOWLY)
     Route: 042
     Dates: start: 20120207
  4. DEXAMETHASONE SODIUM PHOSPHATE [Concomitant]
     Dosage: 1.25 MG, 1X/DAY
     Route: 048
     Dates: start: 20120207
  5. METHOTREXATE SODIUM [Concomitant]
     Dosage: 12 MG, UNK (12 MG AND 5 ML NORMAL SALINE)
     Route: 037
     Dates: start: 20120207
  6. METHYLPREDNISOLONE SODIUM SUCCINATE [Concomitant]
     Dosage: 10 MG, UNK (10MG AND 1 ML NORMAL SALINE)
     Route: 037
     Dates: start: 20120207

REACTIONS (5)
  - Diplegia [Not Recovered/Not Resolved]
  - Spinal cord disorder [Not Recovered/Not Resolved]
  - Back pain [Not Recovered/Not Resolved]
  - Faecal incontinence [Not Recovered/Not Resolved]
  - Urinary incontinence [Not Recovered/Not Resolved]
